FAERS Safety Report 23430102 (Version 1)
Quarter: 2024Q1

REPORT INFORMATION
  Report Type: Spontaneous
  Country: FR (occurrence: FR)
  Receive Date: 20240122
  Receipt Date: 20240122
  Transmission Date: 20240410
  Serious: Yes (Hospitalization, Other)
  Sender: FDA-Public Use
  Company Number: FR-AFSSAPS-AN2024000044

PATIENT
  Age: 80 Year
  Sex: Male
  Weight: 90 kg

DRUGS (10)
  1. CARBOPLATIN [Suspect]
     Active Substance: CARBOPLATIN
     Indication: Bronchial carcinoma
     Dosage: 580 MILLIGRAM
     Route: 042
     Dates: start: 20231025, end: 20231124
  2. PEMBROLIZUMAB [Suspect]
     Active Substance: PEMBROLIZUMAB
     Indication: Bronchial carcinoma
     Dosage: 200 MILLIGRAM
     Route: 042
     Dates: start: 20220921, end: 20231006
  3. TAXOL [Suspect]
     Active Substance: PACLITAXEL
     Indication: Bronchial carcinoma
     Dosage: 165 MILLIGRAM
     Route: 042
     Dates: start: 20231025, end: 20231130
  4. SILODOSIN [Concomitant]
     Active Substance: SILODOSIN
     Indication: Product used for unknown indication
     Dosage: 6 MILLIGRAM, ONCE A DAY
     Route: 048
  5. SPIRIVA [Concomitant]
     Active Substance: TIOTROPIUM BROMIDE MONOHYDRATE
     Indication: Product used for unknown indication
     Dosage: 1 DOSAGE FORM, ONCE A DAY
  6. ATORVASTATIN [Concomitant]
     Active Substance: ATORVASTATIN
     Indication: Product used for unknown indication
     Dosage: 10 MILLIGRAM, ONCE A DAY
     Route: 048
  7. LATANOPROST [Concomitant]
     Active Substance: LATANOPROST
     Indication: Product used for unknown indication
     Dosage: 1 GTT DROPS, ONCE A DAY
  8. AVODART [Concomitant]
     Active Substance: DUTASTERIDE
     Indication: Product used for unknown indication
     Dosage: 1 DOSAGE FORM, ONCE A DAY
     Route: 048
  9. ASPIRIN [Concomitant]
     Active Substance: ASPIRIN
     Indication: Product used for unknown indication
     Dosage: 1 DOSAGE FORM, ONCE A DAY
     Route: 048
  10. INDACATEROL [Concomitant]
     Active Substance: INDACATEROL
     Indication: Product used for unknown indication
     Dosage: 1 DOSAGE FORM, ONCE A DAY

REACTIONS (2)
  - Meningitis aseptic [Recovering/Resolving]
  - Encephalitis [Recovering/Resolving]

NARRATIVE: CASE EVENT DATE: 20231205
